FAERS Safety Report 16756425 (Version 1)
Quarter: 2019Q3

REPORT INFORMATION
  Report Type: Report from Study
  Country: US (occurrence: US)
  Receive Date: 20190829
  Receipt Date: 20190829
  Transmission Date: 20191005
  Serious: Yes (Other)
  Sender: FDA-Public Use
  Company Number: US-MYLANLABS-2019M1080614

PATIENT
  Sex: Male

DRUGS (7)
  1. CYTARABINE. [Suspect]
     Active Substance: CYTARABINE
     Indication: DIFFUSE LARGE B-CELL LYMPHOMA
     Dosage: PART OF BEAM REGIMEN: ON DAYS -5 TO -2
     Route: 042
  2. VENETOCLAX. [Suspect]
     Active Substance: VENETOCLAX
     Indication: DIFFUSE LARGE B-CELL LYMPHOMA
     Dosage: ON DAY -10
     Route: 048
  3. VENETOCLAX. [Suspect]
     Active Substance: VENETOCLAX
     Dosage: ON DAY -9
     Route: 048
  4. ETOPOSIDE. [Suspect]
     Active Substance: ETOPOSIDE
     Indication: DIFFUSE LARGE B-CELL LYMPHOMA
     Dosage: PART OF BEAM REGIMEN: ON DAYS -5 TO -2
     Route: 042
  5. BICNU [Suspect]
     Active Substance: CARMUSTINE
     Indication: DIFFUSE LARGE B-CELL LYMPHOMA
     Dosage: PART OF BEAM REGIMEN: ON DAY-6
     Route: 065
  6. VENETOCLAX. [Suspect]
     Active Substance: VENETOCLAX
     Dosage: ON DAYS-8 TO -1
     Route: 048
  7. MELPHALAN. [Suspect]
     Active Substance: MELPHALAN
     Indication: DIFFUSE LARGE B-CELL LYMPHOMA
     Dosage: PART OF BEAM REGIMEN: ON DAY -1
     Route: 042

REACTIONS (3)
  - Hepatotoxicity [Unknown]
  - Diarrhoea [Unknown]
  - Stomatitis [Unknown]
